FAERS Safety Report 5476746-3 (Version None)
Quarter: 2007Q4

REPORT INFORMATION
  Report Type: 
  Country: None (occurrence: None)
  Receive Date: 20071002
  Receipt Date: 20070918
  Transmission Date: 20080405
  Serious: Yes (Disabling)
  Sender: FDA-Public Use
  Company Number: 230284M07USA

PATIENT

DRUGS (1)
  1. INTERFERON (INTERFERON) [Suspect]
     Indication: MULTIPLE SCLEROSIS

REACTIONS (1)
  - BLINDNESS [None]
